FAERS Safety Report 11993423 (Version 1)
Quarter: 2016Q1

REPORT INFORMATION
  Report Type: Report from Study
  Country: ES (occurrence: ES)
  Receive Date: 20160203
  Receipt Date: 20160203
  Transmission Date: 20160526
  Serious: Yes (Death, Hospitalization, Other)
  Sender: FDA-Public Use
  Company Number: PHHY2015ES128990

PATIENT
  Sex: Male

DRUGS (2)
  1. CLOMETIAZOL [Concomitant]
     Indication: AGITATION
     Dosage: 192 MG, QD
     Route: 065
     Dates: start: 201410, end: 20141106
  2. VOTRIENT [Suspect]
     Active Substance: PAZOPANIB HYDROCHLORIDE
     Indication: RENAL CELL CARCINOMA
     Route: 065

REACTIONS (1)
  - Seizure [Fatal]

NARRATIVE: CASE EVENT DATE: 20141028
